FAERS Safety Report 16062075 (Version 2)
Quarter: 2019Q1

REPORT INFORMATION
  Report Type: Spontaneous
  Country: JP (occurrence: JP)
  Receive Date: 20190312
  Receipt Date: 20190319
  Transmission Date: 20190418
  Serious: Yes (Hospitalization, Other)
  Sender: FDA-Public Use
  Company Number: JP-BAYER-2019-043301

PATIENT
  Age: 28 Year
  Sex: Female
  Weight: 57 kg

DRUGS (13)
  1. BAYASPIRIN 100 MG [Suspect]
     Active Substance: ASPIRIN
     Indication: CEREBRAL INFARCTION
     Dosage: DAILY DOSE 100 MG
  2. WARFARIN [Suspect]
     Active Substance: WARFARIN
     Dosage: DAILY DOSE 3 MG
     Route: 048
  3. ROCURONIUM [Concomitant]
     Active Substance: ROCURONIUM BROMIDE
  4. RINGERS SOLUTION [Concomitant]
     Active Substance: CALCIUM CHLORIDE\POTASSIUM CHLORIDE\SODIUM CHLORIDE
     Dosage: 1250ML
  5. SUGAMMADEX [Concomitant]
     Active Substance: SUGAMMADEX
     Dosage: 200MG
  6. BAYASPIRIN 100 MG [Suspect]
     Active Substance: ASPIRIN
     Indication: ARRHYTHMIA SUPRAVENTRICULAR
  7. HEPARIN [Suspect]
     Active Substance: HEPARIN SODIUM
     Indication: THROMBOSIS PROPHYLAXIS
     Dosage: 500U/H
  8. RINGERS SOLUTION [Concomitant]
     Active Substance: CALCIUM CHLORIDE\POTASSIUM CHLORIDE\SODIUM CHLORIDE
     Dosage: 2150ML
  9. HEPARIN [Suspect]
     Active Substance: HEPARIN SODIUM
     Indication: THROMBOSIS PROPHYLAXIS
     Dosage: UNK
  10. FENTANYL. [Concomitant]
     Active Substance: FENTANYL
     Dosage: 1500?G
  11. OXYTOCIN. [Concomitant]
     Active Substance: OXYTOCIN
     Indication: UTERINE ATONY
     Dosage: 10U
  12. PROPOFOL. [Concomitant]
     Active Substance: PROPOFOL
  13. KETAMINE [Concomitant]
     Active Substance: KETAMINE
     Dosage: 100MG

REACTIONS (14)
  - Tachycardia [None]
  - Exposure during pregnancy [None]
  - Product use in unapproved indication [None]
  - Uterine haematoma [None]
  - Hypotension [None]
  - Contraindicated product administered [None]
  - Labelled drug-drug interaction medication error [None]
  - Peripartum haemorrhage [None]
  - Premature delivery [None]
  - Abdominal wall haematoma [None]
  - Off label use [None]
  - Subchorionic haematoma [None]
  - Postpartum haemorrhage [None]
  - Product monitoring error [None]
